FAERS Safety Report 9822065 (Version 2)
Quarter: 2014Q1

REPORT INFORMATION
  Report Type: Spontaneous
  Country: AR (occurrence: AR)
  Receive Date: 20140116
  Receipt Date: 20140120
  Transmission Date: 20141002
  Serious: Yes (Other)
  Sender: FDA-Public Use
  Company Number: PHHY2014AR004239

PATIENT
  Age: 7 Year
  Sex: Male

DRUGS (2)
  1. TEGRETOL [Suspect]
     Indication: CONVULSION
     Dosage: 30 ML, UNK
     Route: 048
     Dates: start: 2011
  2. TEGRETOL [Suspect]
     Dosage: UNK UKN, UNK
     Route: 048

REACTIONS (3)
  - Gastric perforation [Recovered/Resolved]
  - Dysphagia [Recovered/Resolved]
  - Wrong technique in drug usage process [Unknown]
